FAERS Safety Report 9338940 (Version 1)
Quarter: 2013Q2

REPORT INFORMATION
  Report Type: Spontaneous
  Country: GB (occurrence: GB)
  Receive Date: 20130610
  Receipt Date: 20130610
  Transmission Date: 20140414
  Serious: Yes (Other)
  Sender: FDA-Public Use
  Company Number: PHHY2013GB056316

PATIENT
  Age: 92 Year
  Sex: Female
  Weight: 70 kg

DRUGS (10)
  1. ALENDRONIC ACID [Suspect]
     Indication: OSTEOPOROSIS
     Dosage: 1 DF, QW
     Route: 048
     Dates: start: 2010
  2. ASPIRIN [Concomitant]
     Dosage: 75 MG
  3. FELODIPINE [Concomitant]
  4. CARBOCISTEINE [Concomitant]
  5. RAMIPRIL [Concomitant]
  6. LANSOPRAZOLE [Concomitant]
  7. FUROSEMIDE [Concomitant]
  8. GLICLAZIDE [Concomitant]
  9. CALCIUM [Concomitant]
  10. SIMVASTATIN [Concomitant]

REACTIONS (1)
  - Confusional state [Unknown]
